FAERS Safety Report 5219337-1 (Version None)
Quarter: 2007Q1

REPORT INFORMATION
  Report Type: 
  Country: None (occurrence: None)
  Receive Date: 20061121
  Receipt Date: 20060822
  Transmission Date: 20070707
  Serious: No
  Sender: FDA-Public Use
  Company Number: TPA2006A01401

PATIENT
  Age: 44 Year
  Sex: Male
  Weight: 86.1834 kg

DRUGS (8)
  1. ROZEREM [Suspect]
     Indication: INSOMNIA
     Dosage: 8 MG, QHS, PER ORAL
     Route: 048
     Dates: start: 20060815, end: 20060816
  2. AMIODARONE (AMIODARONE) (200 MILLIGRAM) [Concomitant]
  3. PLAVIX [Concomitant]
  4. ASPIRIN [Concomitant]
  5. PEPCID (FAMOTIDINE) (20 MILLIGRAM) [Concomitant]
  6. LIPITOR (ATORVASTATIN) (10 MILLIGRAM) [Concomitant]
  7. BUSPAR (BUSPIRONE HYDROCHLORIDE) (5 MILLIGRAM) [Concomitant]
  8. DOXYCYCLINE (DOXYCYCLINE) (100 MILLIGRAM) [Concomitant]

REACTIONS (6)
  - ABNORMAL DREAMS [None]
  - ARRHYTHMIA [None]
  - FATIGUE [None]
  - HYPERSOMNIA [None]
  - PAIN [None]
  - VENTRICULAR EXTRASYSTOLES [None]
